FAERS Safety Report 14125888 (Version 1)
Quarter: 2017Q4

REPORT INFORMATION
  Report Type: Spontaneous
  Country: US (occurrence: US)
  Receive Date: 20171025
  Receipt Date: 20171025
  Transmission Date: 20180321
  Serious: No
  Sender: FDA-Public Use
  Company Number: US-ST. RENATUS-2017STR00037

PATIENT
  Age: 56 Year
  Sex: Female
  Weight: 108.84 kg

DRUGS (4)
  1. ATIVAN [Concomitant]
     Active Substance: LORAZEPAM
  2. ATENOLOL. [Concomitant]
     Active Substance: ATENOLOL
  3. KOVANAZE [Suspect]
     Active Substance: OXYMETAZOLINE HYDROCHLORIDE\TETRACAINE HYDROCHLORIDE
     Indication: TOOTH REPAIR
     Dosage: 1 DOSAGE UNITS, TWICE
     Route: 045
     Dates: start: 20170713, end: 20170713
  4. NEXIUM [Concomitant]
     Active Substance: ESOMEPRAZOLE MAGNESIUM

REACTIONS (6)
  - Influenza like illness [Recovered/Resolved]
  - Nasal discomfort [Recovered/Resolved]
  - Flushing [Recovered/Resolved]
  - Toothache [Recovered/Resolved]
  - Skin disorder [Recovered/Resolved]
  - Rhinorrhoea [Recovered/Resolved]

NARRATIVE: CASE EVENT DATE: 20170713
